FAERS Safety Report 6719333-9 (Version None)
Quarter: 2010Q2

REPORT INFORMATION
  Report Type: 
  Country: None (occurrence: None)
  Receive Date: 20100511
  Receipt Date: 20100506
  Transmission Date: 20101027
  Serious: Yes (Death)
  Sender: FDA-Public Use
  Company Number: PHHY2010US29592

PATIENT
  Sex: Female

DRUGS (1)
  1. EXJADE [Suspect]
     Indication: LYMPHOMA
     Dosage: 500 MG, QD
     Route: 048

REACTIONS (1)
  - DEATH [None]
